FAERS Safety Report 24789453 (Version 5)
Quarter: 2025Q1

REPORT INFORMATION
  Report Type: Spontaneous
  Country: US (occurrence: US)
  Receive Date: 20241230
  Receipt Date: 20250224
  Transmission Date: 20250409
  Serious: No
  Sender: PFIZER
  Company Number: US-PFIZER INC-202400331280

PATIENT
  Age: 15 Year
  Sex: Male

DRUGS (2)
  1. GENOTROPIN [Suspect]
     Active Substance: SOMATROPIN
     Dosage: 2.8 MG, DAILY, 7 DAYS/WK
  2. GENOTROPIN [Suspect]
     Active Substance: SOMATROPIN
     Dates: start: 202312

REACTIONS (2)
  - Device mechanical issue [Unknown]
  - Wrong technique in device usage process [Unknown]
